FAERS Safety Report 8625144-X (Version None)
Quarter: 2012Q3

REPORT INFORMATION
  Report Type: 
  Country: None (occurrence: None)
  Receive Date: 20120827
  Receipt Date: 20120813
  Transmission Date: 20120928
  Serious: Yes (Hospitalization, Other)
  Sender: FDA-Public Use
  Company Number: JP-VERTEX PHARMACEUTICAL INC.-AE-2012-003666

PATIENT
  Age: 62 Year
  Sex: Male

DRUGS (19)
  1. VX-950 [Suspect]
     Indication: HEPATITIS C
     Dosage: 2250 MG, QD
     Route: 048
     Dates: start: 20120207, end: 20120305
  2. RIBAVIRIN [Concomitant]
     Dosage: 600 MG, QD
     Route: 048
     Dates: start: 20120314, end: 20120424
  3. PEGINTERFERON ALFA-2B [Concomitant]
     Dosage: 1.61 UNK, UNK
     Route: 058
     Dates: end: 20120515
  4. REBAMIPIDE [Concomitant]
     Dosage: 300 MG, QD
     Route: 048
     Dates: start: 20120414, end: 20120617
  5. ALENDRONATE SODIUM [Concomitant]
     Dosage: 35 MG, UNK
     Route: 048
     Dates: start: 20120414, end: 20120617
  6. RIBAVIRIN [Concomitant]
     Dosage: 200 MG, QD
     Route: 048
     Dates: start: 20120425, end: 20120517
  7. PEGINTERFERON ALFA-2B [Concomitant]
     Indication: HEPATITIS C
     Dosage: 100 UNK, UNK
     Route: 058
     Dates: start: 20120207
  8. VX-950 [Suspect]
     Dosage: 1000 MG, QD
     Route: 048
     Dates: start: 20120306, end: 20120424
  9. VX-950 [Suspect]
     Dosage: 500 MG, QD
     Route: 048
     Dates: start: 20120425, end: 20120501
  10. SCOPOLAMINE [Concomitant]
     Dosage: 20 MG, PRN
     Route: 048
  11. TALION [Concomitant]
     Dosage: 20 MG, QD
     Route: 048
     Dates: start: 20120207
  12. CEFDINIR [Concomitant]
     Route: 048
  13. EPINASTINE HYDROCHLORIDE [Concomitant]
     Route: 048
  14. RIBAVIRIN [Concomitant]
     Indication: HEPATITIS C
     Dosage: 800 MG, QD
     Route: 048
     Dates: start: 20120207, end: 20120313
  15. LANSOPRAZOLE [Concomitant]
     Dosage: 15 MG, PRN
     Route: 048
  16. PREDNISOLONE [Concomitant]
     Route: 048
  17. ALENDRONATE SODIUM [Concomitant]
     Route: 048
  18. REBAMIPIDE [Concomitant]
     Route: 048
  19. CEFDINIR [Concomitant]
     Dosage: 300 MG, QD
     Route: 048
     Dates: start: 20120426, end: 20120509

REACTIONS (2)
  - ANAEMIA [None]
  - RENAL DISORDER [None]
